FAERS Safety Report 6312420-9 (Version None)
Quarter: 2009Q3

REPORT INFORMATION
  Report Type: 
  Country: None (occurrence: None)
  Receive Date: 20090813
  Receipt Date: 20090729
  Transmission Date: 20100115
  Serious: Yes (Hospitalization, Other)
  Sender: FDA-Public Use
  Company Number: TW-000005

PATIENT
  Age: 66 Year
  Sex: Female

DRUGS (2)
  1. IOPAMIDOL [Suspect]
     Indication: ACUTE MYOCARDIAL INFARCTION
     Dosage: INTRA-ARTERIAL
     Route: 013
     Dates: start: 19950608, end: 19950608
  2. IOPAMIDOL [Suspect]
     Indication: ANGIOGRAM
     Dosage: INTRA-ARTERIAL
     Route: 013
     Dates: start: 19950608, end: 19950608

REACTIONS (4)
  - BLOOD GLUCOSE DECREASED [None]
  - BLOOD GLUCOSE INCREASED [None]
  - NEPHROPATHY [None]
  - RENAL FAILURE ACUTE [None]
